FAERS Safety Report 21204263 (Version 1)
Quarter: 2022Q3

REPORT INFORMATION
  Report Type: Spontaneous
  Country: US (occurrence: US)
  Receive Date: 20220812
  Receipt Date: 20220812
  Transmission Date: 20221026
  Serious: Yes (Hospitalization)
  Sender: FDA-Public Use
  Company Number: US-SA-SAC20220809001802

PATIENT
  Age: 51 Year
  Sex: Male
  Weight: 77 kg

DRUGS (2)
  1. CERDELGA [Suspect]
     Active Substance: ELIGLUSTAT
     Indication: Gaucher^s disease
     Dosage: 84 MG, BID
     Route: 065
     Dates: start: 20161220
  2. IBUPROFEN [Concomitant]
     Active Substance: IBUPROFEN

REACTIONS (1)
  - Aortic bypass [Unknown]

NARRATIVE: CASE EVENT DATE: 20220725
